FAERS Safety Report 9031258 (Version 1)
Quarter: 2013Q1

REPORT INFORMATION
  Report Type: Spontaneous
  Country: GB (occurrence: GB)
  Receive Date: 20130123
  Receipt Date: 20130123
  Transmission Date: 20140127
  Serious: Yes (Other)
  Sender: FDA-Public Use
  Company Number: GB-MYLANLABS-2013S1000776

PATIENT
  Age: 27 Year
  Sex: Female
  Weight: 59.9 kg

DRUGS (1)
  1. DOXYCYCLINE [Suspect]
     Indication: ACNE
     Route: 048
     Dates: start: 20120518, end: 20120915

REACTIONS (1)
  - Nausea [Recovered/Resolved]
